FAERS Safety Report 19945466 (Version 11)
Quarter: 2025Q1

REPORT INFORMATION
  Report Type: Report from Study
  Country: DE (occurrence: DE)
  Receive Date: 20211012
  Receipt Date: 20250224
  Transmission Date: 20250409
  Serious: Yes (Hospitalization, Other)
  Sender: MYLAN
  Company Number: DE-ROCHE-2130154

PATIENT
  Age: 47 Year
  Sex: Female

DRUGS (92)
  1. PANTOPRAZOLE [Suspect]
     Active Substance: PANTOPRAZOLE
     Indication: Product used for unknown indication
     Dosage: 20 MILLIGRAM, QD (1-0-0)
  2. PANTOPRAZOLE [Suspect]
     Active Substance: PANTOPRAZOLE
     Dosage: 20 MILLIGRAM, QD (1-0-0)
     Route: 065
  3. PANTOPRAZOLE [Suspect]
     Active Substance: PANTOPRAZOLE
     Dosage: 20 MILLIGRAM, QD (1-0-0)
     Route: 065
  4. PANTOPRAZOLE [Suspect]
     Active Substance: PANTOPRAZOLE
     Dosage: 20 MILLIGRAM, QD (1-0-0)
  5. OCREVUS [Suspect]
     Active Substance: OCRELIZUMAB
     Indication: Relapsing-remitting multiple sclerosis
  6. OCREVUS [Suspect]
     Active Substance: OCRELIZUMAB
     Route: 042
  7. OCREVUS [Suspect]
     Active Substance: OCRELIZUMAB
     Route: 042
  8. OCREVUS [Suspect]
     Active Substance: OCRELIZUMAB
  9. OCREVUS [Suspect]
     Active Substance: OCRELIZUMAB
  10. OCREVUS [Suspect]
     Active Substance: OCRELIZUMAB
     Route: 042
  11. OCREVUS [Suspect]
     Active Substance: OCRELIZUMAB
  12. OCREVUS [Suspect]
     Active Substance: OCRELIZUMAB
     Route: 042
  13. OCREVUS [Suspect]
     Active Substance: OCRELIZUMAB
  14. OCREVUS [Suspect]
     Active Substance: OCRELIZUMAB
  15. OCREVUS [Suspect]
     Active Substance: OCRELIZUMAB
     Route: 042
  16. OCREVUS [Suspect]
     Active Substance: OCRELIZUMAB
     Route: 042
  17. OCREVUS [Suspect]
     Active Substance: OCRELIZUMAB
     Route: 042
  18. OCREVUS [Suspect]
     Active Substance: OCRELIZUMAB
     Route: 042
  19. OCREVUS [Suspect]
     Active Substance: OCRELIZUMAB
  20. OCREVUS [Suspect]
     Active Substance: OCRELIZUMAB
  21. OCREVUS [Suspect]
     Active Substance: OCRELIZUMAB
     Route: 042
  22. OCREVUS [Suspect]
     Active Substance: OCRELIZUMAB
     Route: 042
  23. OCREVUS [Suspect]
     Active Substance: OCRELIZUMAB
  24. OCREVUS [Suspect]
     Active Substance: OCRELIZUMAB
  25. OCREVUS [Suspect]
     Active Substance: OCRELIZUMAB
     Route: 042
  26. OCREVUS [Suspect]
     Active Substance: OCRELIZUMAB
     Route: 042
  27. OCREVUS [Suspect]
     Active Substance: OCRELIZUMAB
  28. OCREVUS [Suspect]
     Active Substance: OCRELIZUMAB
  29. OCREVUS [Suspect]
     Active Substance: OCRELIZUMAB
     Route: 042
  30. OCREVUS [Suspect]
     Active Substance: OCRELIZUMAB
     Route: 042
  31. OCREVUS [Suspect]
     Active Substance: OCRELIZUMAB
  32. OCREVUS [Suspect]
     Active Substance: OCRELIZUMAB
  33. OCREVUS [Suspect]
     Active Substance: OCRELIZUMAB
     Route: 042
  34. OCREVUS [Suspect]
     Active Substance: OCRELIZUMAB
     Route: 042
  35. OCREVUS [Suspect]
     Active Substance: OCRELIZUMAB
  36. OCREVUS [Suspect]
     Active Substance: OCRELIZUMAB
  37. OCREVUS [Suspect]
     Active Substance: OCRELIZUMAB
  38. OCREVUS [Suspect]
     Active Substance: OCRELIZUMAB
  39. OCREVUS [Suspect]
     Active Substance: OCRELIZUMAB
     Route: 042
  40. OCREVUS [Suspect]
     Active Substance: OCRELIZUMAB
     Route: 042
  41. ALLOPURINOL [Concomitant]
     Active Substance: ALLOPURINOL
     Dosage: 150 MILLIGRAM, QD
  42. ALLOPURINOL [Concomitant]
     Active Substance: ALLOPURINOL
     Dosage: 150 MILLIGRAM, QD
     Route: 065
  43. ALLOPURINOL [Concomitant]
     Active Substance: ALLOPURINOL
     Dosage: 150 MILLIGRAM, QD
     Route: 065
  44. ALLOPURINOL [Concomitant]
     Active Substance: ALLOPURINOL
     Dosage: 150 MILLIGRAM, QD
  45. CANDESARTAN [Concomitant]
     Active Substance: CANDESARTAN
     Dosage: 5 MILLIGRAM, QD (1-0-0)
  46. CANDESARTAN [Concomitant]
     Active Substance: CANDESARTAN
     Dosage: 5 MILLIGRAM, QD (1-0-0)
     Route: 065
  47. CANDESARTAN [Concomitant]
     Active Substance: CANDESARTAN
     Dosage: 5 MILLIGRAM, QD (1-0-0)
     Route: 065
  48. CANDESARTAN [Concomitant]
     Active Substance: CANDESARTAN
     Dosage: 5 MILLIGRAM, QD (1-0-0)
  49. VIMPAT [Concomitant]
     Active Substance: LACOSAMIDE
     Indication: Epilepsy
     Dosage: 50 MILLIGRAM, BID (1-0-1)
  50. VIMPAT [Concomitant]
     Active Substance: LACOSAMIDE
     Dosage: 50 MILLIGRAM, BID (1-0-1)
     Route: 048
  51. VIMPAT [Concomitant]
     Active Substance: LACOSAMIDE
     Dosage: 50 MILLIGRAM, BID (1-0-1)
     Route: 048
  52. VIMPAT [Concomitant]
     Active Substance: LACOSAMIDE
     Dosage: 50 MILLIGRAM, BID (1-0-1)
  53. GABAPENTIN [Concomitant]
     Active Substance: GABAPENTIN
     Indication: Muscle spasticity
     Dosage: 300 MILLIGRAM, BID (1-0-1)
  54. GABAPENTIN [Concomitant]
     Active Substance: GABAPENTIN
     Dosage: 300 MILLIGRAM, BID (1-0-1)
  55. GABAPENTIN [Concomitant]
     Active Substance: GABAPENTIN
     Dosage: 300 MILLIGRAM, BID (1-0-1)
     Route: 065
  56. GABAPENTIN [Concomitant]
     Active Substance: GABAPENTIN
     Dosage: 300 MILLIGRAM, BID (1-0-1)
     Route: 065
  57. GABAPENTIN [Concomitant]
     Active Substance: GABAPENTIN
     Dosage: 300 MILLIGRAM, TID (1-1-1)
  58. GABAPENTIN [Concomitant]
     Active Substance: GABAPENTIN
     Dosage: 300 MILLIGRAM, TID (1-1-1)
  59. GABAPENTIN [Concomitant]
     Active Substance: GABAPENTIN
     Dosage: 300 MILLIGRAM, TID (1-1-1)
     Route: 065
  60. GABAPENTIN [Concomitant]
     Active Substance: GABAPENTIN
     Dosage: 300 MILLIGRAM, TID (1-1-1)
     Route: 065
  61. GABAPENTIN [Concomitant]
     Active Substance: GABAPENTIN
     Dosage: 600 MILLIGRAM, BID (1-0-1)
  62. GABAPENTIN [Concomitant]
     Active Substance: GABAPENTIN
     Dosage: 600 MILLIGRAM, BID (1-0-1)
     Route: 065
  63. GABAPENTIN [Concomitant]
     Active Substance: GABAPENTIN
     Dosage: 600 MILLIGRAM, BID (1-0-1)
  64. GABAPENTIN [Concomitant]
     Active Substance: GABAPENTIN
     Dosage: 600 MILLIGRAM, BID (1-0-1)
     Route: 065
  65. CROMOLYN SODIUM\REPROTEROL HYDROCHLORIDE [Concomitant]
     Active Substance: CROMOLYN SODIUM\REPROTEROL HYDROCHLORIDE
  66. CROMOLYN SODIUM\REPROTEROL HYDROCHLORIDE [Concomitant]
     Active Substance: CROMOLYN SODIUM\REPROTEROL HYDROCHLORIDE
     Route: 065
  67. CROMOLYN SODIUM\REPROTEROL HYDROCHLORIDE [Concomitant]
     Active Substance: CROMOLYN SODIUM\REPROTEROL HYDROCHLORIDE
     Route: 065
  68. CROMOLYN SODIUM\REPROTEROL HYDROCHLORIDE [Concomitant]
     Active Substance: CROMOLYN SODIUM\REPROTEROL HYDROCHLORIDE
  69. CITALOPRAM [Concomitant]
     Active Substance: CITALOPRAM
     Indication: Depression
     Dosage: 10 MILLIGRAM, QD (1-0-0)
  70. CITALOPRAM [Concomitant]
     Active Substance: CITALOPRAM
     Dosage: 10 MILLIGRAM, QD (1-0-0)
     Route: 048
  71. CITALOPRAM [Concomitant]
     Active Substance: CITALOPRAM
     Dosage: 10 MILLIGRAM, QD (1-0-0)
     Route: 048
  72. CITALOPRAM [Concomitant]
     Active Substance: CITALOPRAM
     Dosage: 10 MILLIGRAM, QD (1-0-0)
  73. BACLOFEN [Concomitant]
     Active Substance: BACLOFEN
     Indication: Muscle spasticity
     Dosage: 10 MILLIGRAM, TID (1-1-1)
  74. BACLOFEN [Concomitant]
     Active Substance: BACLOFEN
     Dosage: 10 MILLIGRAM, TID (1-1-1)
  75. BACLOFEN [Concomitant]
     Active Substance: BACLOFEN
     Dosage: 10 MILLIGRAM, TID (1-1-1)
     Route: 048
  76. BACLOFEN [Concomitant]
     Active Substance: BACLOFEN
     Dosage: 10 MILLIGRAM, TID (1-1-1)
     Route: 048
  77. BACLOFEN [Concomitant]
     Active Substance: BACLOFEN
     Dosage: 10 MILLIGRAM, BID
  78. BACLOFEN [Concomitant]
     Active Substance: BACLOFEN
     Dosage: 10 MILLIGRAM, BID
  79. BACLOFEN [Concomitant]
     Active Substance: BACLOFEN
     Dosage: 10 MILLIGRAM, BID
     Route: 048
  80. BACLOFEN [Concomitant]
     Active Substance: BACLOFEN
     Dosage: 10 MILLIGRAM, BID
     Route: 048
  81. Comirnaty [Concomitant]
     Dates: start: 20210409, end: 20210409
  82. Comirnaty [Concomitant]
     Dates: start: 20210409, end: 20210409
  83. Comirnaty [Concomitant]
     Route: 065
     Dates: start: 20210409, end: 20210409
  84. Comirnaty [Concomitant]
     Route: 065
     Dates: start: 20210409, end: 20210409
  85. Comirnaty [Concomitant]
     Dates: start: 20210521, end: 20210521
  86. Comirnaty [Concomitant]
     Dates: start: 20210521, end: 20210521
  87. Comirnaty [Concomitant]
     Route: 065
     Dates: start: 20210521, end: 20210521
  88. Comirnaty [Concomitant]
     Route: 065
     Dates: start: 20210521, end: 20210521
  89. NOVALGINA [Concomitant]
     Active Substance: ACETAMINOPHEN\CAFFEINE
  90. NOVALGINA [Concomitant]
     Active Substance: ACETAMINOPHEN\CAFFEINE
     Route: 065
  91. NOVALGINA [Concomitant]
     Active Substance: ACETAMINOPHEN\CAFFEINE
     Route: 065
  92. NOVALGINA [Concomitant]
     Active Substance: ACETAMINOPHEN\CAFFEINE

REACTIONS (30)
  - Osteonecrosis [Recovered/Resolved]
  - Lipoedema [Not Recovered/Not Resolved]
  - Cervical spinal stenosis [Recovered/Resolved]
  - Pneumonia [Unknown]
  - Platelet count decreased [Recovered/Resolved]
  - Sjogren^s syndrome [Not Recovered/Not Resolved]
  - Peripheral swelling [Recovering/Resolving]
  - Tumour marker increased [Recovered/Resolved]
  - Hypertension [Unknown]
  - Dermatitis allergic [Recovered/Resolved]
  - Palpitations [Recovered/Resolved]
  - Nasopharyngitis [Recovered/Resolved]
  - Dry eye [Not Recovered/Not Resolved]
  - Otitis media [Recovered/Resolved]
  - Muscle spasms [Recovered/Resolved]
  - Seasonal allergy [Recovered/Resolved]
  - COVID-19 [Recovered/Resolved]
  - Balance disorder [Recovered/Resolved]
  - Infection susceptibility increased [Recovered/Resolved]
  - White blood cell count increased [Recovered/Resolved]
  - Eye inflammation [Not Recovered/Not Resolved]
  - Gait disturbance [Recovered/Resolved]
  - Cognitive disorder [Recovered/Resolved]
  - Stress [Not Recovered/Not Resolved]
  - Weight increased [Not Recovered/Not Resolved]
  - Erythema [Recovered/Resolved]
  - Arthralgia [Recovered/Resolved]
  - Rash pruritic [Recovered/Resolved]
  - Fatigue [Not Recovered/Not Resolved]
  - Asthenia [Recovered/Resolved]

NARRATIVE: CASE EVENT DATE: 20180515
